FAERS Safety Report 16244527 (Version 1)
Quarter: 2019Q2

REPORT INFORMATION
  Report Type: Report from Study
  Country: AU (occurrence: AU)
  Receive Date: 20190426
  Receipt Date: 20190426
  Transmission Date: 20190711
  Serious: Yes (Other)
  Sender: FDA-Public Use
  Company Number: AU-JNJFOC-20181111063

PATIENT
  Age: 47 Year
  Sex: Female
  Weight: 80 kg

DRUGS (9)
  1. REMICADE [Suspect]
     Active Substance: INFLIXIMAB
     Indication: PSORIATIC ARTHROPATHY
     Route: 042
     Dates: start: 201902
  2. LORATADINE. [Concomitant]
     Active Substance: LORATADINE
     Indication: PREMEDICATION
     Route: 048
  3. PARACETAMOL [Concomitant]
     Active Substance: ACETAMINOPHEN
     Indication: PREMEDICATION
     Route: 048
     Dates: start: 20180326
  4. ZANTAC [Concomitant]
     Active Substance: RANITIDINE HYDROCHLORIDE
     Route: 065
  5. HYDROCORTISONE. [Concomitant]
     Active Substance: HYDROCORTISONE
     Indication: PREMEDICATION
     Route: 042
     Dates: start: 20180326
  6. CLARATYNE [Concomitant]
     Active Substance: LORATADINE
     Indication: PREMEDICATION
     Route: 048
     Dates: start: 20180326
  7. NEXIUM [Concomitant]
     Active Substance: ESOMEPRAZOLE MAGNESIUM
     Route: 065
  8. REMICADE [Suspect]
     Active Substance: INFLIXIMAB
     Indication: PSORIATIC ARTHROPATHY
     Route: 042
     Dates: start: 20180326
  9. CODEINE [Suspect]
     Active Substance: CODEINE
     Indication: PAIN
     Route: 065

REACTIONS (13)
  - Constipation [Not Recovered/Not Resolved]
  - Malaise [Recovered/Resolved]
  - Alopecia [Not Recovered/Not Resolved]
  - Mouth ulceration [Recovered/Resolved]
  - Memory impairment [Not Recovered/Not Resolved]
  - Ear congestion [Not Recovered/Not Resolved]
  - Infusion related reaction [Recovered/Resolved]
  - Lacrimation increased [Recovered/Resolved]
  - Pain [Unknown]
  - Eye pain [Recovered/Resolved]
  - Chest discomfort [Recovered/Resolved]
  - Nausea [Not Recovered/Not Resolved]
  - Paraesthesia [Recovered/Resolved]

NARRATIVE: CASE EVENT DATE: 20181001
